FAERS Safety Report 14582304 (Version 9)
Quarter: 2018Q3

REPORT INFORMATION
  Report Type: Spontaneous
  Country: GR (occurrence: GR)
  Receive Date: 20180228
  Receipt Date: 20180705
  Transmission Date: 20181010
  Serious: Yes (Other)
  Sender: FDA-Public Use
  Company Number: GR-PFIZER INC-2018083853

PATIENT
  Age: 50 Year
  Sex: Male

DRUGS (13)
  1. EPLERENONE. [Interacting]
     Active Substance: EPLERENONE
     Dosage: 50 MG, DAILY
  2. CARVEDILOL. [Interacting]
     Active Substance: CARVEDILOL
     Dosage: 25 MG, 2X/DAY
  3. FUROSEMIDE. [Concomitant]
     Active Substance: FUROSEMIDE
     Dosage: 40 MG, 2X/DAY
  4. METFORMIN [Concomitant]
     Active Substance: METFORMIN HYDROCHLORIDE
     Dosage: 850 MG, 1X/DAY
  5. EPLERENONE. [Interacting]
     Active Substance: EPLERENONE
     Dosage: 25 MG, DAILY
  6. LCZ696 [Interacting]
     Active Substance: SACUBITRIL\VALSARTAN
     Indication: OEDEMA PERIPHERAL
     Dosage: 100 MG, 2X/DAY
  7. LCZ696 [Interacting]
     Active Substance: SACUBITRIL\VALSARTAN
     Indication: DYSPNOEA EXERTIONAL
     Dosage: 50 MG, 2X/DAY
  8. SULFAMETHOXAZOLE 800 MG, TRIMETHOPRIM 160 MG [Interacting]
     Active Substance: SULFAMETHOXAZOLE\TRIMETHOPRIM
     Indication: URINARY TRACT INFECTION
     Dosage: 1 DF, 2X/DAY
  9. EPLERENONE. [Suspect]
     Active Substance: EPLERENONE
     Dosage: 25 MG, 2X/DAY
  10. APIXABAN [Concomitant]
     Active Substance: APIXABAN
     Dosage: 10 MG, 1X/DAY
  11. IBUPROFEN. [Interacting]
     Active Substance: IBUPROFEN
     Indication: OSTEOARTHRITIS
     Dosage: 1200 MG, 1X/DAY, OCCASIONAL USE
  12. LCZ696 [Interacting]
     Active Substance: SACUBITRIL\VALSARTAN
     Dosage: 97/103 MG (TWICE DAILY)
  13. ROSUVASTATIN. [Concomitant]
     Active Substance: ROSUVASTATIN
     Dosage: 20 MG, 1X/DAY

REACTIONS (2)
  - Drug interaction [Recovered/Resolved]
  - Hyperkalaemia [Recovered/Resolved]
